FAERS Safety Report 7753469-9 (Version None)
Quarter: 2011Q3

REPORT INFORMATION
  Report Type: 
  Country: None (occurrence: None)
  Receive Date: 20110915
  Receipt Date: 20110905
  Transmission Date: 20111222
  Serious: Yes (Hospitalization, Disabling, Other)
  Sender: FDA-Public Use
  Company Number: JP-CELGENEUS-087-21880-11090386

PATIENT
  Sex: Male

DRUGS (27)
  1. DEXAMETHASONE [Suspect]
     Dosage: 40 MILLIGRAM
     Route: 048
     Dates: start: 20101221, end: 20101224
  2. LANSOPRAZOLE [Concomitant]
     Indication: PROPHYLAXIS
     Dosage: 15 MILLIGRAM
     Route: 048
  3. PRECIPITATED CALCIUM CARBONATE [Concomitant]
     Dosage: 3 GRAM
     Route: 048
  4. DIGOXIN [Concomitant]
     Dosage: 0.5 A
     Route: 041
     Dates: start: 20101226, end: 20101227
  5. REVLIMID [Suspect]
     Dosage: 5 MILLIGRAM
     Route: 048
     Dates: start: 20101221, end: 20110103
  6. VITAMEDIN [Concomitant]
     Dosage: 4 CAPSULE
     Route: 048
  7. DECADRON [Concomitant]
     Indication: MULTIPLE MYELOMA
     Dosage: 80 MILLIGRAM
     Route: 048
     Dates: start: 20101117, end: 20101120
  8. JUVELA [Concomitant]
     Dosage: 6 CAPSULE
     Route: 048
  9. UNASYN [Concomitant]
     Indication: PROPHYLAXIS
     Dosage: 1 TABLET
     Route: 048
     Dates: start: 20101212, end: 20101212
  10. REVLIMID [Suspect]
     Dosage: 5 MILLIGRAM
     Route: 048
     Dates: start: 20110125, end: 20110202
  11. DEXAMETHASONE [Suspect]
     Indication: MULTIPLE MYELOMA
     Dosage: 40 MILLIGRAM
     Route: 048
     Dates: start: 20101125, end: 20101128
  12. DEXAMETHASONE [Suspect]
     Dosage: 4 MILLIGRAM
     Route: 048
     Dates: start: 20101203, end: 20101206
  13. SODIUM BICARBONATE [Concomitant]
     Dosage: 1.5 MILLIGRAM
     Route: 048
  14. DAIPHEN [Concomitant]
     Indication: PROPHYLAXIS
     Dosage: 2 TABLET
     Route: 048
  15. POLARAMINE [Concomitant]
     Indication: PROPHYLAXIS
     Dosage: 5 MILLIGRAM
     Route: 041
     Dates: start: 20101118, end: 20110104
  16. NOVOLIN R [Concomitant]
     Route: 058
  17. LEVOFLOXACIN [Concomitant]
     Indication: PROPHYLAXIS
     Dosage: .5 TABLET
     Route: 048
  18. LEVOFLOXACIN [Concomitant]
     Dosage: .5 TABLET
     Route: 048
     Dates: start: 20101213
  19. ASPIRIN [Concomitant]
     Indication: PROPHYLAXIS
     Dosage: 1 TABLET
     Route: 048
     Dates: start: 20101229, end: 20110104
  20. VICCLOX [Concomitant]
     Indication: PROPHYLAXIS
     Dosage: 200 MILLIGRAM
     Route: 048
  21. ALFAROL [Concomitant]
     Dosage: 2 CAPSULE
     Route: 048
  22. NEO-MINOPHAGEN C [Concomitant]
     Indication: PROPHYLAXIS
     Dosage: 20 MILLIGRAM
     Route: 041
     Dates: start: 20101118, end: 20110104
  23. REVLIMID [Suspect]
     Indication: MULTIPLE MYELOMA
     Dosage: 5 MILLIGRAM
     Route: 048
     Dates: start: 20101117, end: 20101207
  24. ALLOPURINOL [Concomitant]
     Dosage: 50 MILLIGRAM
     Route: 048
  25. LANTUS [Concomitant]
     Route: 058
  26. DIFLUCAN [Concomitant]
     Indication: PROPHYLAXIS
     Dosage: 1 CAPSULE
     Route: 048
  27. LASIX [Concomitant]
     Indication: PROPHYLAXIS
     Dosage: 10 MILLIGRAM
     Route: 041
     Dates: start: 20101118, end: 20110104

REACTIONS (3)
  - ARRHYTHMIA [None]
  - THROMBOCYTOPENIA [None]
  - NEUTROPENIA [None]
